FAERS Safety Report 7985107-4 (Version None)
Quarter: 2011Q4

REPORT INFORMATION
  Report Type: 
  Country: None (occurrence: None)
  Receive Date: 20111216
  Receipt Date: 20111214
  Transmission Date: 20120403
  Serious: Yes (Death, Hospitalization, Other)
  Sender: FDA-Public Use
  Company Number: PHHY2011BR109027

PATIENT
  Sex: Female

DRUGS (4)
  1. DIOVAN HCT [Suspect]
  2. ATENOLOL [Concomitant]
  3. LOSARTAN POTASSIUM [Concomitant]
  4. CAPTOPRIL [Concomitant]

REACTIONS (4)
  - MULTI-ORGAN FAILURE [None]
  - DEMENTIA ALZHEIMER'S TYPE [None]
  - CARDIAC DISORDER [None]
  - CEREBROVASCULAR ACCIDENT [None]
